FAERS Safety Report 7217698-5 (Version None)
Quarter: 2011Q1

REPORT INFORMATION
  Report Type: 
  Country: None (occurrence: None)
  Receive Date: 20110110
  Receipt Date: 20101231
  Transmission Date: 20110831
  Serious: Yes (Death)
  Sender: FDA-Public Use
  Company Number: US-PFIZER INC-2011002728

PATIENT
  Age: 27 Year
  Sex: Male

DRUGS (3)
  1. HYDROXYZINE HCL [Suspect]
  2. METOPROLOL TARTRATE [Suspect]
  3. ZIPRASIDONE HCL [Suspect]

REACTIONS (3)
  - RESPIRATORY ARREST [None]
  - CARDIAC ARREST [None]
  - DEATH [None]
